FAERS Safety Report 7534266-6 (Version None)
Quarter: 2011Q2

REPORT INFORMATION
  Report Type: 
  Country: None (occurrence: None)
  Receive Date: 20110608
  Receipt Date: 20070215
  Transmission Date: 20111010
  Serious: Yes (Other)
  Sender: FDA-Public Use
  Company Number: PHMT2007CA00689

PATIENT
  Sex: Female

DRUGS (2)
  1. DIOVAN HCT [Suspect]
     Dosage: 160VAL-12.5HCT MG
     Route: 048
     Dates: start: 20060301, end: 20061201
  2. DIOVAN HCT [Suspect]
     Dosage: 80VAL-12.5HCT MG
     Route: 048
     Dates: start: 20061201

REACTIONS (1)
  - RECTAL HAEMORRHAGE [None]
